FAERS Safety Report 24648697 (Version 1)
Quarter: 2024Q4

REPORT INFORMATION
  Report Type: Spontaneous
  Country: CN (occurrence: CN)
  Receive Date: 20241121
  Receipt Date: 20241121
  Transmission Date: 20250115
  Serious: Yes (Other)
  Sender: FRESENIUS KABI
  Company Number: CN-FreseniusKabi-FK202417057

PATIENT
  Age: 17 Day
  Sex: Female
  Weight: 2 kg

DRUGS (4)
  1. SMOFLIPID [Suspect]
     Active Substance: FISH OIL\MEDIUM-CHAIN TRIGLYCERIDES\OLIVE OIL\SOYBEAN OIL
     Indication: Nutritional supplementation
     Dosage: FORM OF ADMINISTRATION: INJECTION
     Route: 041
     Dates: start: 20241024, end: 20241111
  2. paediatric compound amino acid injection 19AA-I 30ml [Concomitant]
     Indication: Nutritional supplementation
  3. glucose injection 10% [Concomitant]
     Indication: Nutritional supplementation
     Dosage: 10% GLUCOSE INJECTION 38ML
  4. glucose injection 50% [Concomitant]
     Indication: Nutritional supplementation
     Dosage: 50% GLUCOSE INJECTION 6ML

REACTIONS (2)
  - Hepatic function abnormal [Unknown]
  - Cholestasis [Unknown]

NARRATIVE: CASE EVENT DATE: 20241107
